FAERS Safety Report 5704645-8 (Version None)
Quarter: 2008Q2

REPORT INFORMATION
  Report Type: 
  Country: None (occurrence: None)
  Receive Date: 20080414
  Receipt Date: 20080403
  Transmission Date: 20081010
  Serious: No
  Sender: FDA-Public Use
  Company Number: IE-ASTRAZENECA-2008GB00656

PATIENT
  Sex: Female

DRUGS (1)
  1. SEROQUEL [Suspect]
     Indication: MANIA
     Route: 048

REACTIONS (1)
  - LEUKOPENIA [None]
